FAERS Safety Report 7356191-6 (Version None)
Quarter: 2011Q1

REPORT INFORMATION
  Report Type: 
  Country: None (occurrence: None)
  Receive Date: 20110316
  Receipt Date: 20110311
  Transmission Date: 20110831
  Serious: Yes (Other)
  Sender: FDA-Public Use
  Company Number: CO-PFIZER INC-2011055548

PATIENT
  Sex: Female

DRUGS (1)
  1. ADVIL MAX [Suspect]
     Indication: HEADACHE

REACTIONS (1)
  - BLOOD PRESSURE DECREASED [None]
